FAERS Safety Report 7246131-2 (Version None)
Quarter: 2011Q1

REPORT INFORMATION
  Report Type: 
  Country: None (occurrence: None)
  Receive Date: 20110126
  Receipt Date: 20110119
  Transmission Date: 20110831
  Serious: Yes (Other)
  Sender: FDA-Public Use
  Company Number: A0908731A

PATIENT
  Sex: Male

DRUGS (1)
  1. PAXIL [Suspect]
     Indication: DEPRESSION
     Route: 048
     Dates: start: 19930101

REACTIONS (7)
  - CRYING [None]
  - SUICIDAL IDEATION [None]
  - ANGER [None]
  - OBSESSIVE-COMPULSIVE DISORDER [None]
  - DRUG DEPENDENCE [None]
  - EMOTIONAL DISORDER [None]
  - DRUG INEFFECTIVE [None]
